FAERS Safety Report 9620794 (Version 3)
Quarter: 2014Q1

REPORT INFORMATION
  Report Type: Report from Study
  Country: JP (occurrence: JP)
  Receive Date: 20131015
  Receipt Date: 20140305
  Transmission Date: 20141002
  Serious: Yes (Disabling, Other)
  Sender: FDA-Public Use
  Company Number: JP-AMGEN-JPNCT2013071785

PATIENT
  Age: 73 Year
  Sex: Male
  Weight: 65 kg

DRUGS (52)
  1. DENOSUMAB [Suspect]
     Indication: METASTASES TO BONE
     Dosage: 120 MG/2013/1/8,2/5,3/5
     Route: 058
     Dates: start: 20130108, end: 20130305
  2. DECADRON [Suspect]
     Indication: PRODUCT USED FOR UNKNOWN INDICATION
     Dosage: UNKNOWN
     Route: 065
     Dates: start: 20080502, end: 20130615
  3. UFT-E [Suspect]
     Indication: PRODUCT USED FOR UNKNOWN INDICATION
     Dosage: UNKNOWN
     Route: 065
     Dates: start: 20121225, end: 20130615
  4. ALFAROL [Concomitant]
     Dosage: UNK UNK, UNK
     Route: 048
     Dates: start: 20120522, end: 20130605
  5. CALCIUM LACTATE [Concomitant]
     Dosage: UNK UNK, UNK
     Route: 048
     Dates: start: 20121225, end: 20130605
  6. CASODEX [Concomitant]
     Dosage: UNKNOWN
     Route: 065
     Dates: start: 20080501, end: 20081211
  7. LEUPLIN [Concomitant]
     Dosage: UNKNOWN
     Route: 065
     Dates: start: 20080508, end: 20120319
  8. ODYNE [Concomitant]
     Dosage: UNKNOWN
     Route: 065
     Dates: start: 200901, end: 20090814
  9. TAXOTERE [Concomitant]
     Dosage: UNKNOWN
     Route: 065
     Dates: start: 20090813, end: 20121127
  10. TRYPTANOL                          /00002202/ [Concomitant]
     Dosage: UNK UNK, UNK
     Route: 048
     Dates: start: 20110607, end: 20120206
  11. TOKISHAKUYAKUSAN                   /08000701/ [Concomitant]
     Dosage: UNK UNK, UNK
     Route: 048
     Dates: start: 20120124, end: 20120206
  12. PURSENNID                          /00142207/ [Concomitant]
     Dosage: UNK UNK, UNK
     Route: 048
     Dates: start: 20120221, end: 20121112
  13. CALONAL [Concomitant]
     Dosage: UNK UNK, UNK
     Route: 048
     Dates: start: 20120221, end: 20120510
  14. SEIHAITO [Concomitant]
     Dosage: UNK UNK, UNK
     Route: 065
     Dates: start: 20120319, end: 20120401
  15. CEFDINIR [Concomitant]
     Dosage: UNK UNK, UNK
     Route: 048
     Dates: start: 20120424, end: 20120426
  16. ZITHROMAC [Concomitant]
     Dosage: UNK UNK, UNK
     Route: 048
     Dates: start: 20120511, end: 20120513
  17. LOXONIN [Concomitant]
     Dosage: UNK UNK, UNK
     Route: 048
     Dates: start: 20120514, end: 20120516
  18. GOSHAJINKIGAN [Concomitant]
     Dosage: UNK UNK, UNK
     Route: 048
     Dates: start: 20120717, end: 20121008
  19. LAXOBERON [Concomitant]
     Dosage: UNKNOWN
     Route: 048
     Dates: start: 20120814, end: 201210
  20. FLUITRAN [Concomitant]
     Dosage: UNK UNK, UNK
     Route: 048
     Dates: start: 20121211, end: 20130103
  21. NOVAMIN                            /00013301/ [Concomitant]
     Dosage: UNK UNK, UNK
     Route: 048
     Dates: start: 20121228, end: 20130103
  22. HARNAL [Concomitant]
     Dosage: UNK UNK, UNK
     Route: 048
     Dates: start: 20081211, end: 20130606
  23. MOBIC [Concomitant]
     Dosage: UNK UNK, UNK
     Route: 048
     Dates: start: 20081209, end: 20130425
  24. NORVASC [Concomitant]
     Dosage: UNK UNK, UNK
     Route: 048
     Dates: start: 20120221, end: 20130405
  25. TAKEPRON [Concomitant]
     Dosage: UNK UNK, UNK
     Route: 048
     Dates: start: 20120221, end: 20130606
  26. OXYCONTIN [Concomitant]
     Dosage: UNK UNK, UNK
     Route: 048
     Dates: start: 200811, end: 20130401
  27. OXYCONTIN [Concomitant]
     Route: 048
     Dates: start: 20081119, end: 20130401
  28. OXINORM                            /00045603/ [Concomitant]
     Dosage: UNK UNK, UNK
     Route: 048
     Dates: start: 20100916, end: 20130528
  29. FENTOS [Concomitant]
     Dosage: UNK UNK, UNK
     Route: 050
     Dates: start: 20111004, end: 20130604
  30. LYRICA [Concomitant]
     Dosage: UNK UNK, UNK
     Route: 048
     Dates: start: 20111020, end: 20130219
  31. YOKUKANSAN [Concomitant]
     Dosage: UNK UNK, UNK
     Route: 048
     Dates: start: 20120522, end: 20130606
  32. HIRUDOID                           /00723701/ [Concomitant]
     Dosage: UNKNOWN
     Route: 050
     Dates: start: 20130115, end: 201303
  33. GOREI-SAN [Concomitant]
     Dosage: UNK UNK, UNK
     Route: 048
     Dates: start: 20130219, end: 20130606
  34. LASIX                              /00032601/ [Concomitant]
     Dosage: UNK UNK, UNK
     Route: 048
     Dates: end: 20130407
  35. SERENACE [Concomitant]
     Dosage: UNK UNK, UNK
     Route: 030
     Dates: start: 20130409, end: 20130410
  36. SERENACE [Concomitant]
     Route: 048
     Dates: start: 20130409, end: 20130409
  37. SERENACE [Concomitant]
     Route: 030
     Dates: start: 20130410, end: 20130410
  38. RIVASTACH [Concomitant]
     Dosage: UNK UNK, UNK
     Route: 050
     Dates: start: 20130410, end: 20130418
  39. AMLODIN [Concomitant]
     Dosage: UNK UNK, UNK
     Route: 050
     Dates: start: 20130406, end: 20130606
  40. NOVORAPID [Concomitant]
     Dosage: UNKNOWN
     Route: 058
     Dates: start: 20130411, end: 20130417
  41. RISPERDAL [Concomitant]
     Dosage: UNK UNK, UNK
     Route: 048
     Dates: start: 20130419, end: 20130606
  42. TELEMINSOFT [Concomitant]
     Dosage: UNK UNK, UNK
     Route: 050
     Dates: start: 20130412, end: 20130414
  43. SENNOSIDE                          /00571901/ [Concomitant]
     Dosage: UNK UNK, UNK
     Route: 048
     Dates: start: 20130219, end: 20130606
  44. ALOSENN                            /00476901/ [Concomitant]
     Dosage: UNK UNK, UNK
     Route: 065
     Dates: start: 20080514, end: 20130606
  45. TRAMAL [Concomitant]
     Dosage: ONLY AT THE TIME OF MEASURES
     Route: 030
     Dates: start: 20130405, end: 20130413
  46. FENTANYL [Concomitant]
     Dosage: UNKNOWN, AT THE TIME OF MEASURES
     Route: 042
     Dates: start: 20130413, end: 20130413
  47. PROPOFOL [Concomitant]
     Dosage: UNKNOWN, AT THE TIME OF MEASURES
     Route: 042
     Dates: start: 20130413, end: 20130413
  48. KETALAR [Concomitant]
     Dosage: UNKNOWN, AT THE TIME OF MEASURES
     Route: 042
     Dates: start: 20130413, end: 20130413
  49. TOKISHIGYAKUKAGOSHUYUSHOKYOTO [Concomitant]
     Route: 048
     Dates: start: 20120124, end: 20120206
  50. PURSENNIDE                         /00571901/ [Concomitant]
     Route: 048
     Dates: start: 20120221, end: 20121112
  51. HANGESHASHINTO [Concomitant]
     Route: 048
     Dates: start: 20120124, end: 20120226
  52. ZOMETA [Concomitant]
     Route: 042
     Dates: start: 20090220, end: 20120509

REACTIONS (4)
  - Necrotising fasciitis [Recovering/Resolving]
  - Deep vein thrombosis [Recovering/Resolving]
  - Stomatitis [Recovering/Resolving]
  - Platelet count decreased [Recovered/Resolved]
